FAERS Safety Report 8083912-X (Version None)
Quarter: 2012Q1

REPORT INFORMATION
  Report Type: 
  Country: None (occurrence: None)
  Receive Date: 20120128
  Receipt Date: 20110113
  Transmission Date: 20120608
  Serious: No
  Sender: FDA-Public Use
  Company Number: US-ABBOTT-11P-163-0697371-00

PATIENT
  Age: 36 Year
  Sex: Female

DRUGS (32)
  1. HYDROCODONE BITARTRATE [Concomitant]
     Indication: PAIN
     Dosage: 5/500MG AS NEEDED
  2. HYDROCODONE BITARTRATE [Concomitant]
     Indication: CROHN'S DISEASE
  3. PROCHLORPERAZINE [Concomitant]
     Indication: NAUSEA
  4. BISACODYL [Concomitant]
     Indication: CONSTIPATION
  5. ROPINIPOLE [Concomitant]
     Indication: RESTLESS LEGS SYNDROME
     Dosage: IN PM
  6. FENTANYL [Concomitant]
     Indication: CROHN'S DISEASE
  7. HUMIRA [Suspect]
     Indication: CROHN'S DISEASE
     Dosage: LOADING DOSE
     Dates: start: 20110110
  8. PREDNISONE TAB [Concomitant]
     Indication: PRODUCT USED FOR UNKNOWN INDICATION
  9. TOPIRAMATE [Concomitant]
     Indication: HEADACHE
  10. PROVIDIL [Concomitant]
     Indication: DEPRESSION
     Dosage: EVERY MORNING
  11. FENTANYL [Concomitant]
     Indication: PAIN
  12. ALLEGRA [Concomitant]
     Indication: HYPERSENSITIVITY
  13. NITROFURANTOIN MACROCRYSTALLINE [Concomitant]
     Indication: BLADDER DISORDER
     Dosage: IN PM
  14. SIMBALTA [Concomitant]
     Indication: DEPRESSION
  15. TETRACYCLINE [Concomitant]
     Indication: BLADDER DISORDER
     Dosage: AT PM
  16. LORAZEPAM [Concomitant]
     Indication: ANXIETY
  17. LAMOTRIGINE [Concomitant]
     Indication: DEPRESSION
     Dosage: 1 IN AM AND 2 IN PM
  18. CARAFATE [Concomitant]
     Indication: CHEST DISCOMFORT
  19. BICYCLOMINE [Concomitant]
     Indication: IRRITABLE BOWEL SYNDROME
  20. HYDROXAMINE [Concomitant]
     Indication: DEPRESSION
     Dosage: 1 IN THE AM AND 2 IN PM
  21. HYDROCORTISONE [Concomitant]
     Indication: ADRENAL DISORDER
  22. TRIAMETRENE [Concomitant]
     Indication: HYPERTENSION
     Dosage: 1/2 TABLET DAILY
  23. SINGULAIR [Concomitant]
     Indication: ASTHMA
     Dosage: AT PM
  24. IRON [Concomitant]
     Indication: MINERAL SUPPLEMENTATION
  25. ELMIRON [Concomitant]
     Indication: CYSTITIS
  26. LUNESTA [Concomitant]
     Indication: INSOMNIA
     Dosage: IN PM
  27. ABILIFY [Concomitant]
     Indication: DEPRESSION
     Dosage: AT PM
  28. TOPIRAMATE [Concomitant]
     Dosage: 1 IN AM 2 IN PM
  29. OMEPRAZOLE [Concomitant]
     Indication: GASTROOESOPHAGEAL REFLUX DISEASE
  30. DULCOLAX [Concomitant]
     Indication: CONSTIPATION
  31. CARAFATE [Concomitant]
     Indication: GASTROOESOPHAGEAL REFLUX DISEASE
  32. MULTI-VITAMINS [Concomitant]
     Indication: PRODUCT USED FOR UNKNOWN INDICATION

REACTIONS (1)
  - FATIGUE [None]
